FAERS Safety Report 5061858-9 (Version None)
Quarter: 2006Q3

REPORT INFORMATION
  Report Type: 
  Country: None (occurrence: None)
  Receive Date: 20060703
  Receipt Date: 20060208
  Transmission Date: 20061208
  Serious: No
  Sender: FDA-Public Use
  Company Number: 2006S1001164

PATIENT
  Age: 64 Year
  Sex: Female

DRUGS (7)
  1. CLOZAPINE [Suspect]
     Dosage: 200 MG;HS;ORAL
     Route: 048
     Dates: start: 20030801
  2. MIRTAZAPINE [Concomitant]
  3. ESCITALOPRAM [Concomitant]
  4. QUETIAPINE FUMARATE [Concomitant]
  5. SERTRALINE [Concomitant]
  6. HYDROCHLORIDE [Concomitant]
  7. CLONAZEPAM [Concomitant]

REACTIONS (1)
  - GRANULOCYTOPENIA [None]
